FAERS Safety Report 9120929 (Version 1)
Quarter: 2013Q1

REPORT INFORMATION
  Report Type: Spontaneous
  Country: FR (occurrence: FR)
  Receive Date: 20130226
  Receipt Date: 20130226
  Transmission Date: 20140127
  Serious: Yes (Hospitalization)
  Sender: FDA-Public Use
  Company Number: FR-GLAXOSMITHKLINE-B0869512A

PATIENT
  Age: 92 Year
  Sex: Female

DRUGS (9)
  1. ZELITREX [Suspect]
     Indication: HERPES ZOSTER
     Dosage: 3G PER DAY
     Route: 048
     Dates: start: 20121126
  2. PLAVIX [Concomitant]
     Dosage: 75MG PER DAY
     Route: 048
  3. LASILIX [Concomitant]
     Dosage: 40MG PER DAY
     Route: 048
  4. UMULINE [Concomitant]
     Indication: TYPE 1 DIABETES MELLITUS
     Dosage: 16IU PER DAY
     Route: 058
  5. DIPROSONE [Concomitant]
     Dosage: 1APP PER DAY
     Route: 061
  6. DEXERYL (FRANCE) [Concomitant]
     Dosage: 1APP TWICE PER DAY
     Route: 061
  7. XYZALL [Concomitant]
     Dosage: 5MG TWICE PER DAY
     Route: 048
  8. LEVOTHYROX [Concomitant]
     Indication: HYPOTHYROIDISM
     Route: 048
  9. DOLIPRANE [Concomitant]
     Dosage: 500MG SIX TIMES PER DAY
     Route: 048

REACTIONS (5)
  - Confusional state [Recovered/Resolved]
  - Psychomotor skills impaired [Recovered/Resolved]
  - Renal impairment [Unknown]
  - Condition aggravated [Unknown]
  - Off label use [Unknown]
